FAERS Safety Report 11682060 (Version 2)
Quarter: 2015Q4

REPORT INFORMATION
  Report Type: Report from Study
  Country: US (occurrence: US)
  Receive Date: 20151029
  Receipt Date: 20151116
  Transmission Date: 20160304
  Serious: Yes (Other)
  Sender: FDA-Public Use
  Company Number: US-009507513-1510USA012189

PATIENT

DRUGS (5)
  1. BUSULFAN [Suspect]
     Active Substance: BUSULFAN
     Dosage: UNK
  2. ZOLINZA [Suspect]
     Active Substance: VORINOSTAT
     Indication: T-CELL LYMPHOMA REFRACTORY
  3. MELPHALAN [Suspect]
     Active Substance: MELPHALAN
     Dosage: 60 MG/M2/DAY OVER 30 MINUTES
  4. ZOLINZA [Suspect]
     Active Substance: VORINOSTAT
     Indication: DIFFUSE LARGE B-CELL LYMPHOMA REFRACTORY
     Dosage: 200 MG/DAY TO 1000 MG/DAY (DAYS 8 TO 3)
     Route: 048
  5. GEMCITABINE [Suspect]
     Active Substance: GEMCITABINE\GEMCITABINE HYDROCHLORIDE
     Dosage: LOADING BOLUS OF 75 MG/M2

REACTIONS (1)
  - Diarrhoea [Unknown]
